FAERS Safety Report 7525999-6 (Version None)
Quarter: 2011Q2

REPORT INFORMATION
  Report Type: 
  Country: None (occurrence: None)
  Receive Date: 20110606
  Receipt Date: 20110527
  Transmission Date: 20111010
  Serious: Yes (Other)
  Sender: FDA-Public Use
  Company Number: US-ASTRAZENECA-2011SE33493

PATIENT
  Age: 61 Year
  Sex: Female

DRUGS (1)
  1. CRESTOR [Suspect]
     Route: 048

REACTIONS (5)
  - CARDIAC OPERATION [None]
  - CARDIAC PACEMAKER INSERTION [None]
  - HEART RATE IRREGULAR [None]
  - SUPRAVENTRICULAR TACHYCARDIA [None]
  - CORONARY ARTERY DISEASE [None]
